FAERS Safety Report 9769658 (Version 1)
Quarter: 2013Q4

REPORT INFORMATION
  Report Type: Spontaneous
  Country: US (occurrence: None)
  Receive Date: 20131216
  Receipt Date: 20131216
  Transmission Date: 20140711
  Serious: Yes (Other)
  Sender: FDA-Public Use
  Company Number: 2010S1000473

PATIENT
  Age: 66 Year
  Sex: Male
  Weight: 125.19 kg

DRUGS (7)
  1. FLEET PHOSPHO-SODA [Suspect]
     Indication: COLONOSCOPY
     Dates: start: 200710, end: 200710
  2. SIMVASTATIN [Concomitant]
  3. CYCLOBENZAPRINE [Concomitant]
  4. BENICAR (OLMESARTAN MEDOXOMIL) [Concomitant]
  5. LEVITRA (VARDENAFIL HYDROCHLORIDE) (VARDENAFIL HYDROCHLORIDE) [Concomitant]
  6. NIASPAN (NICOTINIC ACID) [Concomitant]
  7. NEXIUM (ESOMEPRAZOLE MAGNESIUM) [Concomitant]

REACTIONS (5)
  - Renal cyst [None]
  - Nephrolithiasis [None]
  - Pancreatic calcification [None]
  - Nephrosclerosis [None]
  - Renal failure chronic [None]
